FAERS Safety Report 10142328 (Version 1)
Quarter: 2014Q2

REPORT INFORMATION
  Report Type: Spontaneous
  Country: AU (occurrence: AU)
  Receive Date: 20140429
  Receipt Date: 20140429
  Transmission Date: 20141212
  Serious: Yes (Other)
  Sender: FDA-Public Use
  Company Number: PHHY2014AU051839

PATIENT
  Sex: Female

DRUGS (1)
  1. GILENYA [Suspect]
     Dates: start: 20110914, end: 20140411

REACTIONS (6)
  - Basal cell carcinoma [Unknown]
  - Fibrocystic breast disease [Unknown]
  - Nail growth abnormal [Recovering/Resolving]
  - Onychomadesis [Unknown]
  - Asthma [Unknown]
  - Sinusitis [Unknown]
